FAERS Safety Report 10635226 (Version 1)
Quarter: 2014Q4

REPORT INFORMATION
  Report Type: Report from Study
  Country: AR (occurrence: AR)
  Receive Date: 20141205
  Receipt Date: 20141205
  Transmission Date: 20150529
  Serious: Yes (Hospitalization)
  Sender: FDA-Public Use
  Company Number: PHHY2014AR159267

PATIENT
  Sex: Female

DRUGS (3)
  1. PANUM [Concomitant]
     Indication: GASTRITIS PROPHYLAXIS
     Route: 065
  2. OMEPRAZOLE. [Concomitant]
     Active Substance: OMEPRAZOLE
     Indication: GASTRITIS PROPHYLAXIS
     Route: 065
  3. EXFORGE [Suspect]
     Active Substance: AMLODIPINE BESYLATE\VALSARTAN
     Indication: HYPERTENSION
     Dosage: 0.5 DF, BID
     Route: 048

REACTIONS (2)
  - Diverticulitis [Recovering/Resolving]
  - Wrong technique in drug usage process [Unknown]
